FAERS Safety Report 8147890-7 (Version None)
Quarter: 2012Q1

REPORT INFORMATION
  Report Type: 
  Country: None (occurrence: None)
  Receive Date: 20120218
  Receipt Date: 20110325
  Transmission Date: 20120608
  Serious: No
  Sender: FDA-Public Use
  Company Number: US-ALLERGAN-1104294US

PATIENT
  Age: 51 Year
  Sex: Female

DRUGS (3)
  1. IMITREX [Concomitant]
     Indication: HEADACHE
     Dosage: UNK
     Route: 048
  2. FIORICET [Concomitant]
     Indication: HEADACHE
     Dosage: UNK
     Route: 048
  3. BOTULINUM TOXIN TYPE A [Suspect]
     Indication: HEADACHE
     Dosage: 150 UNITS, SINGLE
     Route: 030
     Dates: start: 20110314, end: 20110314

REACTIONS (5)
  - BACK PAIN [None]
  - MUSCULOSKELETAL PAIN [None]
  - HEADACHE [None]
  - MYALGIA [None]
  - NECK PAIN [None]
